FAERS Safety Report 9380404 (Version 1)
Quarter: 2013Q2

REPORT INFORMATION
  Report Type: Spontaneous
  Country: US (occurrence: None)
  Receive Date: 20130628
  Receipt Date: 20130628
  Transmission Date: 20140414
  Serious: Yes (Death)
  Sender: FDA-Public Use
  Company Number: 2013NUEUSA00209

PATIENT
  Age: 79 Year
  Sex: Female

DRUGS (1)
  1. NUEDEXTA (DEXTROMETHORPHAN HYDROBROMIDE 20 MG, QUINIDINE SULFATE 10 MG) CAPSULE, 20/10MG [Suspect]
     Indication: AFFECT LABILITY
     Route: 048

REACTIONS (1)
  - Death [None]
